FAERS Safety Report 7973195-0 (Version None)
Quarter: 2011Q4

REPORT INFORMATION
  Report Type: 
  Country: None (occurrence: None)
  Receive Date: 20111213
  Receipt Date: 20111205
  Transmission Date: 20120403
  Serious: Yes (Hospitalization)
  Sender: FDA-Public Use
  Company Number: US-UCBSA-029528

PATIENT
  Age: 49 Year
  Sex: Female
  Weight: 73 kg

DRUGS (15)
  1. METHOTREXATE [Concomitant]
     Indication: CROHN'S DISEASE
     Dates: start: 20020101, end: 20020101
  2. METHOTREXATE [Concomitant]
     Dates: start: 20090501, end: 20110309
  3. ALBUTEROL [Concomitant]
     Dosage: 2 PUFFS
     Dates: start: 20100101
  4. IBUPROFEN [Concomitant]
     Indication: CROHN'S DISEASE
  5. ALTAPLASE [Concomitant]
     Route: 042
     Dates: start: 20100427
  6. METHOTREXATE [Concomitant]
     Dates: start: 20080703, end: 20090304
  7. LOPERAMIDE HCL [Concomitant]
     Indication: CROHN'S DISEASE
  8. ALLEGRA [Concomitant]
     Indication: SEASONAL ALLERGY
     Dosage: 2 SL; BID
     Dates: start: 20100201
  9. ACETAMINOPHEN [Concomitant]
     Indication: PAIN
     Route: 048
     Dates: start: 20110309, end: 20110313
  10. CIMZIA [Suspect]
     Indication: CROHN'S DISEASE
     Route: 058
     Dates: start: 20091109, end: 20110301
  11. METHOTREXATE [Concomitant]
     Dates: start: 20071001, end: 20080101
  12. AMITRIPTYLINE HCL [Concomitant]
     Indication: DEPRESSION
     Route: 048
     Dates: start: 20090101
  13. BENADRYL [Concomitant]
     Indication: MOTION SICKNESS
     Dosage: 25MG 1-2 , Q4H
     Route: 048
     Dates: start: 20100101
  14. METHOTREXATE [Concomitant]
     Dates: start: 20110503
  15. BENADRYL [Concomitant]
     Indication: RASH
     Dosage: 25MG 1-2 , Q4H
     Route: 048
     Dates: start: 20100101

REACTIONS (1)
  - INFLUENZA [None]
